FAERS Safety Report 9520939 (Version 1)
Quarter: 2013Q1

REPORT INFORMATION
  Report Type: Spontaneous
  Country: US (occurrence: None)
  Receive Date: 20130305
  Receipt Date: 20130305
  Transmission Date: 20140127
  Serious: Yes (Hospitalization)
  Sender: FDA-Public Use
  Company Number: 163-21880-12031578

PATIENT
  Age: 71 Year
  Sex: Male

DRUGS (13)
  1. REVLIMID [Suspect]
     Indication: PLASMA CELL MYELOMA
     Dosage: 25 MG, 1 IN 1 D, PO
     Route: 048
     Dates: start: 20110811
  2. AMBIEN (ZOLPIDEM TARTRATE) (UNKNOWN) [Concomitant]
  3. BACTRIM (BACTRIM) (UNKNOWN) [Concomitant]
  4. COLACE (DOCUSATE SODIUM) (UNKNOWN) [Concomitant]
  5. COUMADIN (WARFARIN SODIUM) (UNKNOWN) [Concomitant]
  6. VITAMIN D (ERGOCALCIFEROL) (UNKNOWN) [Concomitant]
  7. DECADRON [Concomitant]
  8. FENTANYL (FENTANYL) (UNKNOWN) (FENTANYL) [Suspect]
  9. PROCRIT [Concomitant]
  10. VITAMIN B12 (CYANOCOBALAMIN) (UNKNOWN) [Concomitant]
  11. XANAZ (ALPRAZOLAM) (UNKNOWN) [Concomitant]
  12. ZOLOFT (SERTRALINE HYDROCHLORIDE) (UNKNOWN) [Concomitant]
  13. ZOMETA (ZOLEDRONIC ACID) (UNKNOWN) [Concomitant]

REACTIONS (3)
  - Wound infection [None]
  - Fall [None]
  - Laceration [None]
